FAERS Safety Report 9455673 (Version 1)
Quarter: 2013Q3

REPORT INFORMATION
  Report Type: Spontaneous
  Country: FR (occurrence: FR)
  Receive Date: 20130813
  Receipt Date: 20130813
  Transmission Date: 20140515
  Serious: Yes (Other)
  Sender: FDA-Public Use
  Company Number: FR-PFIZER INC-2013228624

PATIENT
  Age: 81 Year
  Sex: Female

DRUGS (1)
  1. AMLOR [Suspect]
     Dosage: UNK

REACTIONS (3)
  - Vasculitis [Unknown]
  - Purpura [Unknown]
  - Skin ulcer [Unknown]
